FAERS Safety Report 16914597 (Version 3)
Quarter: 2020Q1

REPORT INFORMATION
  Report Type: Spontaneous
  Country: US (occurrence: US)
  Receive Date: 20191014
  Receipt Date: 20200217
  Transmission Date: 20200409
  Serious: Yes (Hospitalization, Other)
  Sender: FDA-Public Use
  Company Number: US-AMGEN INC.-USASP2019167608

PATIENT
  Age: 48 Year
  Sex: Male
  Weight: 87.53 kg

DRUGS (44)
  1. COZAAR [Concomitant]
     Active Substance: LOSARTAN POTASSIUM
     Dosage: UNK, 1 TAB MOUTH EVERY DAY
     Route: 048
  2. ZOLPIDEM TARTATE [Concomitant]
     Active Substance: ZOLPIDEM TARTRATE
     Dosage: 10 MILLIGRAM, QD AT BED TIME
     Route: 048
     Dates: start: 20180321
  3. ZOLPIDEM TARTATE [Concomitant]
     Active Substance: ZOLPIDEM TARTRATE
     Dosage: 10 MILLIGRAM, QD AT BED TIME
     Route: 048
     Dates: start: 20181030
  4. SINGULAIR [Concomitant]
     Active Substance: MONTELUKAST SODIUM
     Dosage: 10 MILLIGRAM, QD
     Route: 048
  5. FLONASE [Concomitant]
     Active Substance: FLUTICASONE PROPIONATE
     Indication: TINNITUS
     Dosage: 50 MICROGRAM, ONE SPRAY TO EACH NOSTRIL TWICE A DAILY
  6. FLECAINIDE ACETATE. [Concomitant]
     Active Substance: FLECAINIDE ACETATE
     Dosage: 50 MILLIGRAM,, 1/2 TABLET BID
     Route: 048
  7. DYMISTA [Concomitant]
     Active Substance: AZELASTINE HYDROCHLORIDE\FLUTICASONE PROPIONATE
     Indication: SINUS DISORDER
     Dosage: UNK, ONE SPRAY IN EACH NOSTRIL TWICE A DAY AS NEDDED
  8. RANITIDINE. [Concomitant]
     Active Substance: RANITIDINE
     Dosage: 300 MILLIGRAM
     Dates: start: 20170109
  9. VITAMIN D [COLECALCIFEROL] [Concomitant]
     Active Substance: CHOLECALCIFEROL
     Dosage: 1000 INTERNATIONAL UNIT, QD
  10. AMLODIPINE BESYLATE. [Concomitant]
     Active Substance: AMLODIPINE BESYLATE
     Indication: BLOOD PRESSURE MEASUREMENT
     Dosage: 2.5 MILLIGRAM, 1/2 TABLET DAILY
     Route: 048
  11. METHYLPREDNISOLONE. [Concomitant]
     Active Substance: METHYLPREDNISOLONE
     Dosage: 16 MILLIGRAM, TWO TABLET, THEN ONE TABLET EVERY OTHER DAY
     Route: 048
  12. FLECAINIDE [Concomitant]
     Active Substance: FLECAINIDE
     Dosage: 50 MILLIGRAM, BID
     Route: 048
  13. AMBIEN [Concomitant]
     Active Substance: ZOLPIDEM TARTRATE
     Indication: SLEEP DISORDER
     Dosage: 10 MILLIGRAM, 1/2 TO 1 PRN TO SLEEP
     Route: 048
  14. ZYRTEC [Concomitant]
     Active Substance: CETIRIZINE HYDROCHLORIDE
     Dosage: UNK, 1 TABLET BY MOUTH EVERY DAY
     Route: 048
  15. MAGNESIUM [Concomitant]
     Active Substance: MAGNESIUM
     Dosage: 250 MILLIGRAM
     Route: 048
  16. COENZYME Q10 [Concomitant]
     Active Substance: UBIDECARENONE
     Dosage: UNK
     Route: 048
  17. XYLOCAINE [Concomitant]
     Active Substance: LIDOCAINE HYDROCHLORIDE
     Dosage: UNK UNK, AS NECESSARY, 1 TO 2 SPRAY EACH NOSTRIL EVERY 3 TO 4 HOURS
  18. IMITREX [Concomitant]
     Active Substance: SUMATRIPTAN SUCCINATE
     Dosage: 100 MILLIGRAM
     Route: 048
     Dates: start: 20120109
  19. LOSARTAN POTASSIUM. [Concomitant]
     Active Substance: LOSARTAN POTASSIUM
     Indication: BLOOD PRESSURE MEASUREMENT
     Dosage: 50 MILLIGRAM, QD
     Route: 048
  20. VENTOLIN HFA [Concomitant]
     Active Substance: ALBUTEROL SULFATE
     Dosage: 90 MICROGRAM, AS NECESSARY,  1 TO 4 PUFF EVERY 4 TO 6 HRS
  21. MICARDIS [Concomitant]
     Active Substance: TELMISARTAN
     Indication: TINNITUS
     Dosage: UNK UNK, AS NECESSARY
  22. DYMISTA [Concomitant]
     Active Substance: AZELASTINE HYDROCHLORIDE\FLUTICASONE PROPIONATE
     Dosage: UNK, ONE SPRAY IN EACH NOSTRIL TWICE A DAY AS NEDDED
     Dates: start: 20190705
  23. CLEOCIN [CLINDAMYCIN PHOSPHATE] [Concomitant]
     Dosage: 300 MILLIGRAM,
     Route: 048
  24. ZOLPIDEM TARTATE [Concomitant]
     Active Substance: ZOLPIDEM TARTRATE
     Indication: INSOMNIA
     Dosage: 10 MILLIGRAM
     Route: 048
     Dates: start: 20170109
  25. BACLOFEN. [Concomitant]
     Active Substance: BACLOFEN
     Dosage: 10 MILLIGRAM, FOUR TIMES A DAY
  26. PREDNISONE. [Concomitant]
     Active Substance: PREDNISONE
     Indication: HEADACHE
     Dosage: UNK
     Dates: end: 2018
  27. VERAPAMIL HCL [Concomitant]
     Active Substance: VERAPAMIL HYDROCHLORIDE
     Indication: BLOOD PRESSURE MEASUREMENT
     Dosage: ONE BY MOUTH TWICE A DAY
     Route: 048
  28. XARELTO [Concomitant]
     Active Substance: RIVAROXABAN
     Dosage: UNK, TAKE 1 TAB BY MOUTH EVERY DAY
     Route: 048
  29. NORVASC [Concomitant]
     Active Substance: AMLODIPINE BESYLATE
     Dosage: 2.5 MILLIGRAM
     Route: 048
  30. DIPHENHYDRAMINE HCL [Concomitant]
     Active Substance: DIPHENHYDRAMINE HYDROCHLORIDE
     Dosage: UNK, DAILY AT BEDTIME
     Route: 048
  31. VITAMIN D3 [Concomitant]
     Active Substance: CHOLECALCIFEROL
     Dosage: 1000 INTERNATIONAL UNIT
     Route: 048
  32. BENADRYL ALLERGY [Concomitant]
     Active Substance: DIPHENHYDRAMINE HYDROCHLORIDE
     Indication: TINNITUS
     Dosage: 1 DOSAGE FORM, AS NECESSARY
  33. ALBUTEROL [SALBUTAMOL] [Concomitant]
     Active Substance: ALBUTEROL
     Indication: ASTHMA
     Dosage: 90 MICROGRAM, AS NECESSARY, 1 TO 4 PUFFS EVERY 4 TO 6 HRS
  34. ADVAIR HFA [Concomitant]
     Active Substance: FLUTICASONE PROPIONATE\SALMETEROL XINAFOATE
     Indication: ASTHMA
     Dosage: UNK, 1 PUFF BY M,OUTH EVERY MORNING
  35. FLOVENT [Concomitant]
     Active Substance: FLUTICASONE PROPIONATE
     Indication: TINNITUS
     Dosage: UNK
  36. MIDRIN [DICHLORALPHENAZONE;ISOMETHEPTENE;PARACETAMOL] [Concomitant]
     Indication: DYSPNOEA
     Dosage: UNK
     Route: 048
  37. COREG [Concomitant]
     Active Substance: CARVEDILOL
     Dosage: 3.125 MILLIGRAM, BID
     Route: 048
  38. AIMOVIG [Suspect]
     Active Substance: ERENUMAB-AOOE
     Indication: CLUSTER HEADACHE
     Dosage: 70 MILLIGRAM, QMO
     Route: 058
     Dates: start: 20181031, end: 20181201
  39. PREDNISONE. [Concomitant]
     Active Substance: PREDNISONE
     Dosage: UNK
     Dates: end: 201902
  40. CARVEDILOL. [Concomitant]
     Active Substance: CARVEDILOL
     Indication: BLOOD PRESSURE MEASUREMENT
     Dosage: 6.25 MILLIGRAM, BID
     Route: 048
  41. MAGNESIUM OXIDE. [Concomitant]
     Active Substance: MAGNESIUM OXIDE
     Indication: TINNITUS
     Dosage: 500 MILLIGRAM, BID
     Route: 048
  42. CALAN [Concomitant]
     Active Substance: VERAPAMIL HYDROCHLORIDE
     Dosage: 180 MILLIGRAM
     Route: 048
  43. ZOLPIDEM TARTATE [Concomitant]
     Active Substance: ZOLPIDEM TARTRATE
     Dosage: 10 MILLIGRAM, QD AT BED TIME
     Route: 048
     Dates: start: 20190821
  44. XOPENEX [Concomitant]
     Active Substance: LEVALBUTEROL HYDROCHLORIDE
     Dosage: 45 MICROGRAM
     Dates: start: 20151015

REACTIONS (9)
  - Red blood cell sedimentation rate increased [Recovering/Resolving]
  - Tinnitus [Not Recovered/Not Resolved]
  - Pyrexia [Recovering/Resolving]
  - Hypotension [Recovering/Resolving]
  - Acute respiratory failure [Recovered/Resolved]
  - Myalgia [Recovering/Resolving]
  - Lung disorder [Recovered/Resolved]
  - Off label use [Unknown]
  - C-reactive protein increased [Recovering/Resolving]

NARRATIVE: CASE EVENT DATE: 2018
